FAERS Safety Report 6483164-8 (Version None)
Quarter: 2009Q4

REPORT INFORMATION
  Report Type: 
  Country: None (occurrence: None)
  Receive Date: 20091209
  Receipt Date: 20091203
  Transmission Date: 20100525
  Serious: Yes (Other)
  Sender: FDA-Public Use
  Company Number: US-ROCHE-672468

PATIENT
  Sex: Female
  Weight: 84.8 kg

DRUGS (1)
  1. CAPECITABINE [Suspect]
     Dosage: STRENGTH 500 MG, 150 MG
     Route: 048
     Dates: start: 20090908, end: 20091030

REACTIONS (1)
  - NEOPLASM PROGRESSION [None]
